FAERS Safety Report 22519053 (Version 1)
Quarter: 2023Q2

REPORT INFORMATION
  Report Type: Other
  Country: FR (occurrence: None)
  Receive Date: 20230605
  Receipt Date: 20230605
  Transmission Date: 20230721
  Serious: Yes (Other)
  Sender: FDA-Public Use
  Company Number: FR-ROCHE-3359638

PATIENT

DRUGS (3)
  1. ATEZOLIZUMAB [Suspect]
     Active Substance: ATEZOLIZUMAB
     Indication: Neoplasm malignant
     Route: 065
  2. NIVOLUMAB [Suspect]
     Active Substance: NIVOLUMAB
     Indication: Neoplasm malignant
     Route: 065
  3. PEMBROLIZUMAB [Suspect]
     Active Substance: PEMBROLIZUMAB
     Indication: Neoplasm malignant
     Route: 065

REACTIONS (28)
  - Anaemia [Unknown]
  - Thrombocytopenia [Unknown]
  - Asthenia [Unknown]
  - Rash [Unknown]
  - Cell death [Unknown]
  - Gastrointestinal haemorrhage [Unknown]
  - Hypertension [Unknown]
  - Decreased appetite [Unknown]
  - Alopecia [Unknown]
  - Adrenal insufficiency [Unknown]
  - Arthralgia [Unknown]
  - Cholestasis [Unknown]
  - Colitis [Unknown]
  - Constipation [Unknown]
  - Diabetes mellitus [Unknown]
  - Diarrhoea [Unknown]
  - Abdominal pain upper [Unknown]
  - Epistaxis [Unknown]
  - Hypocalcaemia [Unknown]
  - Onycholysis [Unknown]
  - Stomatitis [Unknown]
  - Pericarditis [Unknown]
  - Neuropathy peripheral [Unknown]
  - Proteinuria [Unknown]
  - Pruritus [Unknown]
  - Psoriasis [Unknown]
  - Vomiting [Unknown]
  - Weight increased [Unknown]
